FAERS Safety Report 6048504-2 (Version None)
Quarter: 2009Q1

REPORT INFORMATION
  Report Type: 
  Country: None (occurrence: None)
  Receive Date: 20090123
  Receipt Date: 20090119
  Transmission Date: 20090719
  Serious: Yes (Hospitalization)
  Sender: FDA-Public Use
  Company Number: B0554836A

PATIENT
  Age: 44 Year
  Sex: Male

DRUGS (6)
  1. ZOVIRAX [Suspect]
     Indication: FEBRILE NEUTROPENIA
     Dates: start: 20081126
  2. FORTUM [Suspect]
     Indication: FEBRILE NEUTROPENIA
     Route: 065
     Dates: start: 20081201
  3. VANCOMYCIN HCL [Suspect]
     Indication: FEBRILE NEUTROPENIA
     Route: 042
     Dates: start: 20081126
  4. FLAGYL [Suspect]
     Indication: FEBRILE NEUTROPENIA
     Route: 042
     Dates: start: 20081126
  5. TAZOCILLINE [Suspect]
     Indication: FEBRILE NEUTROPENIA
     Route: 065
     Dates: start: 20081126, end: 20081201
  6. BACTRIM [Concomitant]

REACTIONS (12)
  - ABDOMINAL PAIN [None]
  - C-REACTIVE PROTEIN INCREASED [None]
  - CHOLESTASIS [None]
  - FACTOR V DEFICIENCY [None]
  - JAUNDICE [None]
  - OEDEMA PERIPHERAL [None]
  - PROTHROMBIN TIME SHORTENED [None]
  - PYREXIA [None]
  - RENAL FAILURE ACUTE [None]
  - THROMBOCYTOPENIC PURPURA [None]
  - TOXIC SKIN ERUPTION [None]
  - WEIGHT INCREASED [None]
